FAERS Safety Report 21346432 (Version 1)
Quarter: 2022Q3

REPORT INFORMATION
  Report Type: Spontaneous
  Country: GB (occurrence: GB)
  Receive Date: 20220917
  Receipt Date: 20220917
  Transmission Date: 20221027
  Serious: Yes (Life-Threatening)
  Sender: FDA-Public Use
  Company Number: None

PATIENT
  Age: 47 Year
  Sex: Female
  Weight: 105 kg

DRUGS (13)
  1. IBUPROFEN [Suspect]
     Active Substance: IBUPROFEN
     Indication: Product used for unknown indication
     Dosage: 400 MILLIGRAM, (APPLY 3-4 TIMES/DAY), (TABLET, UNCOATED)
     Route: 048
     Dates: start: 20220824, end: 20220830
  2. Adcal [Concomitant]
     Indication: Product used for unknown indication
     Dosage: 2 DOSAGE FORM, BID, TAKE ONE TWICE DAILY
     Route: 065
     Dates: start: 20160518
  3. CHOLECALCIFEROL [Concomitant]
     Active Substance: CHOLECALCIFEROL
     Indication: Product used for unknown indication
     Dosage: 1 DOSAGE FORM, MAINTENANCE DOSE TAKE ONE TABLET DAILY
     Route: 065
     Dates: start: 20220201
  4. UNSPECIFIED INGREDIENT [Concomitant]
     Active Substance: UNSPECIFIED INGREDIENT
     Indication: Product used for unknown indication
     Dosage: INHALE ONE DOSE TWICE DAILY, TO INCREASE TO TWO
     Dates: start: 20170111
  5. ESOMEPRAZOLE [Concomitant]
     Active Substance: ESOMEPRAZOLE
     Indication: Product used for unknown indication
     Dosage: 6 DOSAGE FORM, THREE TWICE DAILY
     Route: 065
     Dates: start: 20210730
  6. FAMOTIDINE [Concomitant]
     Active Substance: FAMOTIDINE
     Indication: Product used for unknown indication
     Dosage: 1 DOSAGE FORM, HS, NIGHTLY
     Route: 065
     Dates: start: 20220613
  7. FENBID [Concomitant]
     Indication: Product used for unknown indication
     Dosage: 3 DOSAGE FORM, TID,  APPLY TO THE AFFECTED AREA(S) THREE TIMES A DAY
     Route: 065
     Dates: start: 20220708, end: 20220805
  8. FERROUS FUMARATE [Concomitant]
     Active Substance: FERROUS FUMARATE
     Indication: Product used for unknown indication
     Dosage: 1 DOSAGE FORM, QD, TAKE ONE DAILY
     Route: 065
     Dates: start: 20210728
  9. LEVOTHYROXINE [Concomitant]
     Active Substance: LEVOTHYROXINE
     Indication: Product used for unknown indication
     Dosage: 1 DOSAGE FORM, QD,  MORNING
     Route: 065
     Dates: start: 20161101
  10. PROPRANOLOL [Concomitant]
     Active Substance: PROPRANOLOL HYDROCHLORIDE
     Indication: Product used for unknown indication
     Dosage: 3 DOSAGE FORM, TID, 1 THREE TIMES DAILY AS REQUIRED
     Route: 065
     Dates: start: 20170316
  11. Sanatogen [Concomitant]
     Indication: Product used for unknown indication
     Dosage: 1 DOSAGE FORM, QD, TAKE ONE DAILY
     Route: 065
     Dates: start: 20171229
  12. SERTRALINE [Concomitant]
     Active Substance: SERTRALINE HYDROCHLORIDE
     Indication: Product used for unknown indication
     Dosage: 1 DOSAGE FORM, QD, TAKE ONE TABLET DAILY, (TABLET, UNCOATED)
     Route: 048
     Dates: start: 20181130
  13. ACETAMINOPHEN\CODEINE PHOSPHATE [Concomitant]
     Active Substance: ACETAMINOPHEN\CODEINE PHOSPHATE
     Indication: Product used for unknown indication
     Dosage: UNK, TAKE ONE OR TWO FOUR TIMES A DAY
     Route: 065
     Dates: start: 20220708, end: 20220807

REACTIONS (3)
  - Dyspnoea [Unknown]
  - Drug hypersensitivity [Unknown]
  - Asthma [Unknown]

NARRATIVE: CASE EVENT DATE: 20220830
